FAERS Safety Report 7487685-0 (Version None)
Quarter: 2011Q2

REPORT INFORMATION
  Report Type: 
  Country: None (occurrence: None)
  Receive Date: 20110511
  Receipt Date: 20110429
  Transmission Date: 20111010
  Serious: Yes (Death, Hospitalization)
  Sender: FDA-Public Use
  Company Number: 908264

PATIENT
  Age: 72 Year
  Sex: Female
  Weight: 57.6 kg

DRUGS (11)
  1. OXYCONTIN [Concomitant]
  2. (PAMOL) [Concomitant]
  3. LEUCOVORIN CALCIUM [Suspect]
     Indication: COLORECTAL CANCER METASTATIC
     Dosage: 200 MG/M2 MILLIGRAM(S)/ SQ. METER
     Dates: start: 20090929, end: 20090929
  4. IRINOTECAN HCL [Suspect]
     Indication: COLORECTAL CANCER METASTATIC
     Dosage: 180 MG/M 2 MILLIGRAM(S)/SQ. METER (2 WEEK)
     Dates: start: 20090929, end: 20090929
  5. DICLOFENAC SODIUM [Concomitant]
  6. PLACEBO [Suspect]
     Indication: COLORECTAL CANCER METASTATIC
     Dosage: 4 MG/KG MILLIGRAM(S)/KILOGRAM, (2 WEEK)
     Dates: start: 20090929, end: 20090929
  7. PREDNISOLONE [Concomitant]
  8. ATROPINE [Concomitant]
  9. FLUOROURACIL [Suspect]
     Indication: COLORECTAL CANCER METASTATIC
     Dosage: 400 MG/M 2 MILLIGRAM(S)/SQ. METER (2 WEEK)
     Dates: start: 20090929
  10. OMEPRAZOLE [Concomitant]
  11. ONDANSETRON [Concomitant]

REACTIONS (8)
  - BLOOD POTASSIUM DECREASED [None]
  - INTERSTITIAL LUNG DISEASE [None]
  - BLOOD ALBUMIN DECREASED [None]
  - PULMONARY EMBOLISM [None]
  - DEHYDRATION [None]
  - DIARRHOEA [None]
  - HEART RATE DECREASED [None]
  - METASTASES TO LUNG [None]
